FAERS Safety Report 8622717-5 (Version None)
Quarter: 2012Q3

REPORT INFORMATION
  Report Type: 
  Country: None (occurrence: None)
  Receive Date: 20120827
  Receipt Date: 20120817
  Transmission Date: 20120928
  Serious: Yes (Other)
  Sender: FDA-Public Use
  Company Number: IE-JNJFOC-20120810181

PATIENT
  Sex: Female

DRUGS (7)
  1. REMICADE [Suspect]
     Route: 042
     Dates: start: 20120101
  2. LEVOTHYROXINE SODIUM [Concomitant]
     Route: 065
  3. REMICADE [Suspect]
     Indication: COLITIS
     Route: 042
     Dates: start: 20120817
  4. ALL OTHER THERAPEUTIC PRODUCTS [Concomitant]
     Route: 065
  5. LYRICA [Concomitant]
     Route: 065
  6. CALCORT [Concomitant]
     Route: 065
  7. CALCICHEW D3 [Concomitant]
     Route: 065

REACTIONS (3)
  - VISUAL FIELD DEFECT [None]
  - HERPES ZOSTER [None]
  - INFUSION RELATED REACTION [None]
